FAERS Safety Report 24192155 (Version 3)
Quarter: 2025Q1

REPORT INFORMATION
  Report Type: Report from Study
  Country: US (occurrence: US)
  Receive Date: 20240809
  Receipt Date: 20250113
  Transmission Date: 20250409
  Serious: Yes (Other)
  Sender: ACADIA PHARMACEUTICALS
  Company Number: US-ACADIA PHARMACEUTICALS INC.-ACA-2024-PIM-003617

PATIENT
  Sex: Female

DRUGS (2)
  1. NUPLAZID [Suspect]
     Active Substance: PIMAVANSERIN TARTRATE
     Indication: Parkinson^s disease psychosis
     Dosage: 10 MILLIGRAM, QD
     Route: 048
     Dates: start: 202408
  2. NUPLAZID [Suspect]
     Active Substance: PIMAVANSERIN TARTRATE
     Indication: Parkinson^s disease
     Dosage: 10 MILLIGRAM, QD
     Route: 048
     Dates: end: 202412

REACTIONS (10)
  - Diabetes mellitus [Unknown]
  - Hallucination [Unknown]
  - Feeling abnormal [Unknown]
  - Delusion [Unknown]
  - Cognitive disorder [Unknown]
  - Stubbornness [Unknown]
  - Impaired driving ability [Unknown]
  - Urinary tract infection [Not Recovered/Not Resolved]
  - Aggression [Unknown]
  - Product dose omission issue [Unknown]
